FAERS Safety Report 4355894-5 (Version None)
Quarter: 2004Q2

REPORT INFORMATION
  Report Type: 
  Country: None (occurrence: None)
  Receive Date: 20040505
  Receipt Date: 20040421
  Transmission Date: 20050107
  Serious: Yes (Hospitalization)
  Sender: FDA-Public Use
  Company Number: 2004-DE-02249DE

PATIENT
  Age: 76 Year
  Sex: Male

DRUGS (1)
  1. SIFROL (PRAMIPEXOLE DIHYDROCHLORIDE) (TA)  (PRAMIPEXOLE) [Suspect]
     Indication: PARKINSON'S DISEASE
     Dosage: 0.264 MG (0.088 MG, 3 IN 1 D)
     Route: 048
     Dates: start: 20030223, end: 20040304

REACTIONS (8)
  - ACUTE PRERENAL FAILURE [None]
  - AMNESIA [None]
  - CONVULSION [None]
  - DEHYDRATION [None]
  - DIARRHOEA HAEMORRHAGIC [None]
  - HYPOVOLAEMIA [None]
  - MUCOSAL INFLAMMATION [None]
  - SYNCOPE [None]
